FAERS Safety Report 8906093 (Version 7)
Quarter: 2014Q3

REPORT INFORMATION
  Report Type: Spontaneous
  Country: US (occurrence: US)
  Receive Date: 20121113
  Receipt Date: 20140827
  Transmission Date: 20150326
  Serious: Yes (Hospitalization, Disabling, Other)
  Sender: FDA-Public Use
  Company Number: US-009507513-1211USA004962

PATIENT
  Sex: Male

DRUGS (1)
  1. PROPECIA [Suspect]
     Active Substance: FINASTERIDE
     Indication: ALOPECIA
     Dosage: 1 MG, QD
     Route: 048
     Dates: start: 20000520, end: 20140718

REACTIONS (28)
  - Back pain [Not Recovered/Not Resolved]
  - Libido decreased [Unknown]
  - Exposure to communicable disease [Unknown]
  - Cognitive disorder [Not Recovered/Not Resolved]
  - Renal cyst [Unknown]
  - Gastroenteritis [Recovered/Resolved]
  - Abdominal hernia [Unknown]
  - Inguinal hernia repair [Unknown]
  - Rhinitis allergic [Not Recovered/Not Resolved]
  - Headache [Unknown]
  - Pallor [Unknown]
  - Gastrooesophageal reflux disease [Unknown]
  - Migraine with aura [Not Recovered/Not Resolved]
  - Dysphonia [Unknown]
  - Abdominal discomfort [Recovered/Resolved]
  - Cerebrovascular accident [Not Recovered/Not Resolved]
  - Rotator cuff repair [Unknown]
  - Nausea [Recovered/Resolved]
  - Loss of libido [Unknown]
  - Carpal tunnel syndrome [Unknown]
  - Sexual dysfunction [Not Recovered/Not Resolved]
  - Anxiety [Unknown]
  - Barrett^s oesophagus [Unknown]
  - Trigger finger [Unknown]
  - Vocal cord polyp [Unknown]
  - Fatigue [Unknown]
  - Erectile dysfunction [Unknown]
  - Depression [Unknown]

NARRATIVE: CASE EVENT DATE: 2003
